FAERS Safety Report 4795966-4 (Version None)
Quarter: 2005Q4

REPORT INFORMATION
  Report Type: 
  Country: None (occurrence: None)
  Receive Date: 20051012
  Receipt Date: 20050802
  Transmission Date: 20060501
  Serious: Yes (Hospitalization)
  Sender: FDA-Public Use
  Company Number: US-MERCK-0508USA01051

PATIENT
  Age: 53 Year
  Sex: Female
  Weight: 76 kg

DRUGS (4)
  1. VYTORIN [Suspect]
     Indication: HYPERLIPIDAEMIA
     Route: 048
     Dates: start: 20050615, end: 20050629
  2. DARVOCET-N 100 [Concomitant]
     Indication: PAIN
     Route: 065
  3. AMBIEN [Concomitant]
     Indication: INSOMNIA
     Route: 065
  4. BENICAR HCT [Concomitant]
     Indication: HYPERTENSION
     Route: 065

REACTIONS (8)
  - ANXIETY [None]
  - CHEST PAIN [None]
  - DEPRESSION [None]
  - HEPATITIS ACUTE [None]
  - HYPOTENSION [None]
  - LUNG INFILTRATION [None]
  - RENAL FAILURE ACUTE [None]
  - SYNCOPE [None]
